APPROVED DRUG PRODUCT: PROTOSTAT
Active Ingredient: METRONIDAZOLE
Strength: 500MG
Dosage Form/Route: TABLET;ORAL
Application: N018871 | Product #002
Applicant: ORTHO MCNEIL PHARMACEUTICAL INC
Approved: Mar 2, 1983 | RLD: No | RS: No | Type: DISCN